FAERS Safety Report 7037010-4 (Version None)
Quarter: 2010Q4

REPORT INFORMATION
  Report Type: 
  Country: None (occurrence: None)
  Receive Date: 20101011
  Receipt Date: 20100928
  Transmission Date: 20110411
  Serious: Yes (Other)
  Sender: FDA-Public Use
  Company Number: US-ELI_LILLY_AND_COMPANY-US201009000613

PATIENT
  Sex: Female

DRUGS (7)
  1. CYMBALTA [Suspect]
     Indication: DEPRESSION
  2. PROZAC [Suspect]
     Indication: DEPRESSION
     Dosage: 120 MG, DAILY (1/D)
  3. PROZAC [Suspect]
     Dosage: 60 MG, DAILY (1/D)
  4. PROZAC [Suspect]
     Dosage: 120 MG, DAILY (1/D)
  5. DIAZEPAM [Concomitant]
  6. TOPAMAX [Concomitant]
  7. KEPPRA [Concomitant]

REACTIONS (12)
  - ACTIVITIES OF DAILY LIVING IMPAIRED [None]
  - ANGER [None]
  - DEPRESSION [None]
  - DRUG INEFFECTIVE [None]
  - FATIGUE [None]
  - GRAND MAL CONVULSION [None]
  - INTERVERTEBRAL DISC PROTRUSION [None]
  - LIMB OPERATION [None]
  - MORBID THOUGHTS [None]
  - OVERDOSE [None]
  - ROTATOR CUFF REPAIR [None]
  - SOMNOLENCE [None]
